FAERS Safety Report 9931219 (Version 1)
Quarter: 2014Q1

REPORT INFORMATION
  Report Type: Spontaneous
  Country: GB (occurrence: GB)
  Receive Date: 20140228
  Receipt Date: 20140228
  Transmission Date: 20141002
  Serious: Yes (Disabling)
  Sender: FDA-Public Use
  Company Number: GB-AMGEN-GBRSP2014014473

PATIENT
  Age: 42 Year
  Sex: Female

DRUGS (2)
  1. ENBREL [Suspect]
     Indication: RHEUMATOID ARTHRITIS
     Dosage: 50 MG, UNK
     Route: 058
     Dates: start: 20130829, end: 20131212
  2. CO-CODAMOL [Concomitant]
     Indication: ARTHRALGIA
     Dosage: 2 DF, UNK
     Route: 048

REACTIONS (1)
  - Asthma [Recovering/Resolving]
